FAERS Safety Report 24711181 (Version 1)
Quarter: 2024Q4

REPORT INFORMATION
  Report Type: Report from Study
  Country: CO (occurrence: CO)
  Receive Date: 20241209
  Receipt Date: 20241209
  Transmission Date: 20250114
  Serious: Yes (Other)
  Sender: REGENERON
  Company Number: CO-BAYER-2024A137519

PATIENT
  Sex: Male

DRUGS (2)
  1. EYLEA [Suspect]
     Active Substance: AFLIBERCEPT
     Indication: Neovascular age-related macular degeneration
     Dosage: UNK, 1 MONTHLY INJECTION FOR 3 MONTHS, BOTH EYE, SOL FOR INJ, 40 MG/ML
     Dates: start: 20240717, end: 20240717
  2. EYLEA [Suspect]
     Active Substance: AFLIBERCEPT
     Dosage: 40 MG/ML VIAL WITH 2MG AFLIBERCEPT, SOLUTION FOR INJECTION
     Dates: start: 20240814

REACTIONS (3)
  - Cataract operation [Unknown]
  - Lacrimation increased [Unknown]
  - Eye pain [Unknown]

NARRATIVE: CASE EVENT DATE: 20240815
